FAERS Safety Report 16334148 (Version 5)
Quarter: 2019Q2

REPORT INFORMATION
  Report Type: Spontaneous
  Country: US (occurrence: US)
  Receive Date: 20190520
  Receipt Date: 20190529
  Transmission Date: 20190711
  Serious: Yes (Other)
  Sender: FDA-Public Use
  Company Number: US-PFIZER INC-2019208074

PATIENT
  Age: 48 Year
  Sex: Female

DRUGS (3)
  1. XELJANZ XR [Suspect]
     Active Substance: TOFACITINIB CITRATE
     Indication: DERMATOMYOSITIS
     Dosage: 11 MG, DAILY
     Route: 048
     Dates: start: 20190508
  2. XELJANZ XR [Interacting]
     Active Substance: TOFACITINIB CITRATE
     Indication: SYSTEMIC LUPUS ERYTHEMATOSUS
     Dosage: 11 MG, DAILY
     Route: 048
     Dates: start: 20190514
  3. DIFLUCAN [Interacting]
     Active Substance: FLUCONAZOLE
     Indication: FUNGAL INFECTION
     Dosage: UNK, DAILY
     Dates: start: 20190426

REACTIONS (18)
  - Malaise [Not Recovered/Not Resolved]
  - Abdominal pain upper [Not Recovered/Not Resolved]
  - Visual impairment [Recovering/Resolving]
  - Thinking abnormal [Recovering/Resolving]
  - Dysstasia [Unknown]
  - Gastric ulcer [Not Recovered/Not Resolved]
  - Muscular weakness [Unknown]
  - Speech disorder [Recovering/Resolving]
  - Labelled drug-drug interaction medication error [Unknown]
  - Syncope [Unknown]
  - Dizziness [Unknown]
  - Headache [Unknown]
  - Gastrointestinal disorder [Unknown]
  - Asthenia [Unknown]
  - Condition aggravated [Unknown]
  - Neurological symptom [Unknown]
  - Visual field defect [Unknown]
  - Feeling abnormal [Unknown]

NARRATIVE: CASE EVENT DATE: 201905
